FAERS Safety Report 9836683 (Version 1)
Quarter: 2014Q1

REPORT INFORMATION
  Report Type: Spontaneous
  Country: GB (occurrence: GB)
  Receive Date: 20140123
  Receipt Date: 20140123
  Transmission Date: 20141002
  Serious: Yes (Death, Hospitalization)
  Sender: FDA-Public Use
  Company Number: GB-ROCHE-1335050

PATIENT
  Age: 56 Year
  Sex: Male

DRUGS (3)
  1. COPEGUS [Suspect]
     Indication: HEPATITIS C
     Route: 065
     Dates: start: 20121029, end: 20130721
  2. PEGASYS [Suspect]
     Indication: HEPATITIS C
     Route: 065
     Dates: start: 20121029, end: 20130721
  3. TELAPREVIR [Suspect]
     Indication: HEPATITIS C
     Route: 048
     Dates: start: 20121029, end: 20130121

REACTIONS (6)
  - Melaena [Fatal]
  - Renal failure [Fatal]
  - Upper respiratory tract infection [Fatal]
  - Nephrotic syndrome [Unknown]
  - Off label use [Unknown]
  - Pneumonia [Unknown]
